FAERS Safety Report 6597104-4 (Version None)
Quarter: 2010Q1

REPORT INFORMATION
  Report Type: 
  Country: None (occurrence: None)
  Receive Date: 20100219
  Receipt Date: 20100219
  Transmission Date: 20100710
  Serious: Yes (Life-Threatening, Hospitalization)
  Sender: FDA-Public Use
  Company Number: None

PATIENT
  Age: 83 Year
  Sex: Male
  Weight: 78 kg

DRUGS (2)
  1. METOPROLOL TARTRATE [Suspect]
     Dosage: 30 MG OTHER IV
     Route: 042
     Dates: start: 20100208, end: 20100208
  2. AMIODARONE [Suspect]
     Dosage: 0.5 MG PER HOUR IV
     Route: 042
     Dates: start: 20100207, end: 20100208

REACTIONS (3)
  - BRADYCARDIA [None]
  - ELECTROMECHANICAL DISSOCIATION [None]
  - NO THERAPEUTIC RESPONSE [None]
